FAERS Safety Report 6327550-5 (Version None)
Quarter: 2009Q3

REPORT INFORMATION
  Report Type: 
  Country: None (occurrence: None)
  Receive Date: 20090825
  Receipt Date: 20090810
  Transmission Date: 20100115
  Serious: Yes (Hospitalization)
  Sender: FDA-Public Use
  Company Number: US-ELI_LILLY_AND_COMPANY-US200908005283

PATIENT

DRUGS (5)
  1. HUMULIN N [Suspect]
     Dosage: 16 U, UNK
  2. HUMULIN N [Suspect]
     Dosage: 20 U, UNK
  3. INSULIN [Concomitant]
  4. LOTREL [Concomitant]
     Indication: HYPERTENSION
  5. CATAPRES /00171101/ [Concomitant]
     Dosage: 2 MG, EACH EVENING

REACTIONS (10)
  - BLOOD GLUCOSE INCREASED [None]
  - BLOOD TRIGLYCERIDES INCREASED [None]
  - FATIGUE [None]
  - GAIT DISTURBANCE [None]
  - INCORRECT DOSE ADMINISTERED [None]
  - MYALGIA [None]
  - PAIN IN EXTREMITY [None]
  - PANCREATIC DISORDER [None]
  - POOR QUALITY DRUG ADMINISTERED [None]
  - VOMITING [None]
